FAERS Safety Report 24691027 (Version 2)
Quarter: 2024Q4

REPORT INFORMATION
  Report Type: Spontaneous
  Country: JP (occurrence: JP)
  Receive Date: 20241203
  Receipt Date: 20241212
  Transmission Date: 20250115
  Serious: Yes (Hospitalization, Other)
  Sender: TEVA
  Company Number: JP-TEVA-VS-3270780

PATIENT
  Age: 62 Year
  Sex: Female

DRUGS (1)
  1. OMEPRAZOLE [Suspect]
     Active Substance: OMEPRAZOLE
     Indication: Prophylaxis
     Dosage: BEFORE BEDTIME, ENTERIC COATED TABLET 10MG TAKEDA TEVA
     Route: 048
     Dates: start: 202109, end: 2024

REACTIONS (3)
  - Pneumonia [Unknown]
  - Liver function test increased [Unknown]
  - Product use in unapproved indication [Unknown]
